FAERS Safety Report 7027942-5 (Version None)
Quarter: 2010Q4

REPORT INFORMATION
  Report Type: 
  Country: None (occurrence: None)
  Receive Date: 20101005
  Receipt Date: 20100831
  Transmission Date: 20110411
  Serious: No
  Sender: FDA-Public Use
  Company Number: US-BAYER-201031921NA

PATIENT
  Sex: Female

DRUGS (1)
  1. CLIMARA [Suspect]
     Indication: PRODUCT USED FOR UNKNOWN INDICATION
     Dosage: SOMETIMES USE 1 PATCH FOR 2-3 WEEKS
     Route: 062

REACTIONS (1)
  - APPLICATION SITE IRRITATION [None]
